FAERS Safety Report 6834923-0 (Version None)
Quarter: 2010Q3

REPORT INFORMATION
  Report Type: 
  Country: None (occurrence: None)
  Receive Date: 20100712
  Receipt Date: 20070501
  Transmission Date: 20110219
  Serious: Yes (Other)
  Sender: FDA-Public Use
  Company Number: US-PFIZER INC-2007034604

PATIENT
  Sex: Male
  Weight: 71.7 kg

DRUGS (1)
  1. CHANTIX [Suspect]
     Indication: SMOKING CESSATION THERAPY
     Dates: start: 20070422

REACTIONS (5)
  - ABDOMINAL PAIN UPPER [None]
  - DYSPNOEA [None]
  - GASTRIC ULCER [None]
  - HYPERTENSION [None]
  - SLEEP DISORDER [None]
